FAERS Safety Report 9995378 (Version 1)
Quarter: 2014Q1

REPORT INFORMATION
  Report Type: Spontaneous
  Country: US (occurrence: None)
  Receive Date: 20140307
  Receipt Date: 20140307
  Transmission Date: 20141002
  Serious: Yes (Disabling)
  Sender: FDA-Public Use
  Company Number: None

PATIENT
  Age: 60 Year
  Sex: Male
  Weight: 106.6 kg

DRUGS (4)
  1. LEVOFLOXACIN [Suspect]
     Indication: PNEUMONIA
     Route: 048
     Dates: start: 20140207, end: 20140219
  2. FUROSEMIDE [Suspect]
     Indication: LOCAL SWELLING
     Route: 048
     Dates: start: 20140207, end: 20140218
  3. FUROSEMIDE [Suspect]
     Indication: JOINT SWELLING
     Route: 048
     Dates: start: 20140207, end: 20140218
  4. FUROSEMIDE [Suspect]
     Indication: LOCAL SWELLING
     Route: 048
     Dates: start: 20140207, end: 20140218

REACTIONS (3)
  - Diplopia [None]
  - Discomfort [None]
  - Muscular weakness [None]
